FAERS Safety Report 5166965-8 (Version None)
Quarter: 2006Q4

REPORT INFORMATION
  Report Type: 
  Country: None (occurrence: None)
  Receive Date: 20061207
  Receipt Date: 20061023
  Transmission Date: 20070319
  Serious: Yes (Disabling, Other)
  Sender: FDA-Public Use
  Company Number: 2006AP05043

PATIENT
  Age: 65 Year
  Sex: Female

DRUGS (4)
  1. ATACAND [Suspect]
     Indication: BLOOD PRESSURE
     Route: 048
     Dates: start: 20030214
  2. ACETAMINOPHEN [Concomitant]
  3. SIMVASTATIN [Concomitant]
  4. ATENOLOL [Concomitant]
     Indication: BLOOD PRESSURE

REACTIONS (3)
  - PAIN [None]
  - RHABDOMYOLYSIS [None]
  - TENDON RUPTURE [None]
